FAERS Safety Report 6528805-1 (Version None)
Quarter: 2010Q1

REPORT INFORMATION
  Report Type: 
  Country: None (occurrence: None)
  Receive Date: 20100106
  Receipt Date: 20091225
  Transmission Date: 20100710
  Serious: Yes (Hospitalization)
  Sender: FDA-Public Use
  Company Number: JP-ELI_LILLY_AND_COMPANY-JP201001000045

PATIENT
  Sex: Male

DRUGS (1)
  1. HUMULIN 70/30 [Suspect]
     Dosage: UNK, UNK
     Route: 058
     Dates: start: 20060101

REACTIONS (1)
  - CARDIAC FAILURE [None]
